FAERS Safety Report 7462168-2 (Version None)
Quarter: 2011Q2

REPORT INFORMATION
  Report Type: 
  Country: None (occurrence: None)
  Receive Date: 20110506
  Receipt Date: 20091107
  Transmission Date: 20111010
  Serious: Yes (Death, Hospitalization, Other)
  Sender: FDA-Public Use
  Company Number: US-BAYER-200938826NA

PATIENT
  Age: 76 Year
  Sex: Female
  Weight: 102.95 kg

DRUGS (27)
  1. TRASYLOL [Suspect]
     Indication: ATRIAL SEPTAL DEFECT REPAIR
  2. TRASYLOL [Suspect]
     Indication: CARDIAC OPERATION
  3. PITRESSIN [Concomitant]
     Dosage: 100 U, UNK
     Route: 042
     Dates: start: 20041004
  4. LEVOPHED [Concomitant]
     Dosage: 4 MG, UNK
     Route: 042
     Dates: start: 20041004
  5. AMIODARONE [Concomitant]
     Dosage: DRIP BOLUS
     Dates: start: 20041004
  6. VANCOMYCIN [Concomitant]
     Dosage: 1 G, UNK
     Route: 042
     Dates: start: 20041004
  7. LASIX [Concomitant]
     Dosage: 20 MG, Q1HR
     Route: 042
     Dates: start: 20041004
  8. ANCEF [Concomitant]
     Dosage: 1 G, UNK
     Route: 042
     Dates: start: 20041004
  9. TOPROL-XL [Concomitant]
     Dosage: 50 MG, QD
     Route: 048
  10. LESCOL [Concomitant]
     Dosage: 80 MG, NIGHTLY
  11. HYDROCHLOROTHIAZIDE [Concomitant]
     Dosage: 25 MG, QD
     Route: 048
  12. ZANTAC [Concomitant]
     Dosage: 150 MG, QD
     Route: 048
  13. TRASYLOL [Suspect]
     Indication: CORONARY ARTERY BYPASS
     Dosage: UNK, TEST DOSE
     Route: 042
     Dates: start: 20041004, end: 20041004
  14. TRASYLOL [Suspect]
     Indication: MITRAL VALVE REPAIR
     Dosage: UNK, FULL DOSE BOLUS
     Route: 042
     Dates: start: 20041004, end: 20041004
  15. PLASMA [Concomitant]
     Dosage: 4 U, UNK
     Route: 042
     Dates: start: 20041004
  16. DOPAMINE HCL [Concomitant]
     Dosage: UNK
     Route: 042
     Dates: start: 20041004
  17. LEVOPHED [Concomitant]
     Dosage: 25 MG, UNK
     Route: 042
     Dates: start: 20041004
  18. COUMADIN [Concomitant]
     Dosage: 5 MG, QD
     Route: 048
  19. EPINEPHRINE [Concomitant]
     Dosage: 50 MG, UNK
     Route: 042
     Dates: start: 20041004
  20. RED BLOOD CELLS [Concomitant]
     Dosage: 2 U, UNK
     Route: 042
     Dates: start: 20041004
  21. PLATELETS [Concomitant]
     Dosage: 6 U, UNK
     Route: 042
     Dates: start: 20041004
  22. PITRESSIN [Concomitant]
     Dosage: 10 MG, UNK
     Route: 042
     Dates: start: 20041004
  23. TRASYLOL [Suspect]
     Indication: INTRA-AORTIC BALLOON PLACEMENT
  24. EPINEPHRINE [Concomitant]
     Dosage: 3 MCG/KG, UNK
     Dates: start: 20041004
  25. MILRINONE [Concomitant]
     Dosage: UNK
     Dates: start: 20041004
  26. PRINIVIL [Concomitant]
     Dosage: 40 MG, QD
     Route: 048
  27. NORVASC [Concomitant]
     Dosage: 10 MG, QD
     Route: 048

REACTIONS (9)
  - RENAL FAILURE [None]
  - FEAR [None]
  - ANXIETY [None]
  - PAIN [None]
  - CARDIOGENIC SHOCK [None]
  - INJURY [None]
  - ANHEDONIA [None]
  - UNEVALUABLE EVENT [None]
  - DEPRESSION [None]
